FAERS Safety Report 4918511-9 (Version None)
Quarter: 2006Q1

REPORT INFORMATION
  Report Type: 
  Country: None (occurrence: None)
  Receive Date: 20060217
  Receipt Date: 20060217
  Transmission Date: 20060701
  Serious: No
  Sender: FDA-Public Use
  Company Number: None

PATIENT
  Age: 44 Year
  Sex: Female
  Weight: 63.5036 kg

DRUGS (1)
  1. TEQUIN [Suspect]
     Indication: SKIN INFECTION
     Dosage: 1 TAB/DAY ORAL
     Route: 048
     Dates: start: 20040401

REACTIONS (2)
  - ASTHENIA [None]
  - TREMOR [None]
